FAERS Safety Report 9150099 (Version 1)
Quarter: 2013Q1

REPORT INFORMATION
  Report Type: Spontaneous
  Country: US (occurrence: None)
  Receive Date: 20130228
  Receipt Date: 20130228
  Transmission Date: 20140127
  Serious: Yes (Hospitalization)
  Sender: FDA-Public Use
  Company Number: None

PATIENT
  Age: 50 Year
  Sex: Male
  Weight: 71.1 kg

DRUGS (2)
  1. CITALOPRAM [Suspect]
     Indication: DEPRESSION
     Route: 048
     Dates: start: 20121223, end: 20130222
  2. TRAMADOL [Suspect]
     Indication: PAIN
     Route: 048
     Dates: start: 20130125, end: 20130222

REACTIONS (3)
  - Serotonin syndrome [None]
  - Respiratory failure [None]
  - Chronic obstructive pulmonary disease [None]
